FAERS Safety Report 7355738-3 (Version None)
Quarter: 2011Q1

REPORT INFORMATION
  Report Type: 
  Country: None (occurrence: None)
  Receive Date: 20110316
  Receipt Date: 20110311
  Transmission Date: 20110831
  Serious: Yes (Hospitalization, Other)
  Sender: FDA-Public Use
  Company Number: US-PFIZER INC-2010126148

PATIENT
  Sex: Female

DRUGS (7)
  1. LAMICTAL [Concomitant]
     Indication: BIPOLAR DISORDER
     Dosage: UNK
     Dates: start: 20010901, end: 20091001
  2. CYANOCOBALAMIN [Concomitant]
     Indication: PERNICIOUS ANAEMIA
     Dosage: UNK
     Route: 051
     Dates: start: 19940101
  3. LITHIUM [Concomitant]
     Indication: BIPOLAR DISORDER
     Dosage: UNK
     Dates: start: 20010901, end: 20091001
  4. GEODON [Concomitant]
     Indication: BIPOLAR DISORDER
     Dosage: UNK
     Dates: start: 20010901, end: 20091001
  5. PROZAC [Concomitant]
     Indication: BIPOLAR DISORDER
     Dosage: UNK
     Dates: start: 20010901, end: 20091001
  6. ZOLOFT [Concomitant]
     Indication: BIPOLAR DISORDER
     Dosage: UNK
     Dates: start: 20010901, end: 20091001
  7. CHANTIX [Suspect]
     Indication: SMOKING CESSATION THERAPY
     Dosage: 0.5/1.0 MG
     Dates: start: 20070330, end: 20070409

REACTIONS (7)
  - EMOTIONAL DISTRESS [None]
  - DEPRESSION [None]
  - AGGRESSION [None]
  - ANXIETY [None]
  - ABNORMAL BEHAVIOUR [None]
  - SUICIDE ATTEMPT [None]
  - MENTAL DISORDER [None]
